FAERS Safety Report 9263421 (Version 1)
Quarter: 2013Q2

REPORT INFORMATION
  Report Type: Spontaneous
  Country: US (occurrence: US)
  Receive Date: 20130430
  Receipt Date: 20130430
  Transmission Date: 20140414
  Serious: No
  Sender: FDA-Public Use
  Company Number: US-ABBOTT-12P-163-0933918-00

PATIENT
  Age: 80 Year
  Sex: Female
  Weight: 78.09 kg

DRUGS (4)
  1. CREON [Suspect]
     Indication: PANCREATITIS
     Dates: start: 20120504, end: 20120508
  2. UNKNOWN MEDICATION [Concomitant]
     Indication: HYPERTENSION
  3. UNKNOWN MEDICATION [Concomitant]
     Indication: BLOOD CHOLESTEROL INCREASED
  4. UNKNOWN MEDICATION [Concomitant]
     Indication: GASTROOESOPHAGEAL REFLUX DISEASE

REACTIONS (3)
  - Frequent bowel movements [Unknown]
  - Abdominal pain [Unknown]
  - Flatulence [Unknown]
